FAERS Safety Report 6206878-3 (Version None)
Quarter: 2009Q2

REPORT INFORMATION
  Report Type: 
  Country: None (occurrence: None)
  Receive Date: 20090528
  Receipt Date: 20090518
  Transmission Date: 20091009
  Serious: Yes (Other)
  Sender: FDA-Public Use
  Company Number: PK-WATSON-2009-03520

PATIENT
  Age: 30 Year
  Sex: Male

DRUGS (2)
  1. METRONIDAZOLE [Suspect]
     Indication: ABDOMINAL DISCOMFORT
     Dosage: UNK
     Dates: start: 20080101
  2. HYOSCINE HBR HYT [Suspect]
     Indication: ABDOMINAL DISCOMFORT
     Dosage: UNK
     Dates: start: 20080101

REACTIONS (4)
  - BLISTER [None]
  - KOEBNER PHENOMENON [None]
  - LINEAR IGA DISEASE [None]
  - SKIN REACTION [None]
